FAERS Safety Report 24307824 (Version 1)
Quarter: 2024Q3

REPORT INFORMATION
  Report Type: Spontaneous
  Country: US (occurrence: None)
  Receive Date: 20240910
  Receipt Date: 20240910
  Transmission Date: 20241017
  Serious: No
  Sender: Public
  Company Number: None

PATIENT
  Age: 43 Year
  Sex: Female
  Weight: 45 kg

DRUGS (4)
  1. TYLENOL [Suspect]
     Active Substance: ACETAMINOPHEN
  2. IBUPROFEN [Suspect]
     Active Substance: IBUPROFEN
  3. ASPIRIN [Suspect]
     Active Substance: ASPIRIN
  4. LYSINE [Concomitant]
     Active Substance: LYSINE

REACTIONS (2)
  - Rash [None]
  - Rash macular [None]

NARRATIVE: CASE EVENT DATE: 20240412
